FAERS Safety Report 5898952-6 (Version None)
Quarter: 2008Q3

REPORT INFORMATION
  Report Type: 
  Country: None (occurrence: None)
  Receive Date: 20080925
  Receipt Date: 20080915
  Transmission Date: 20090109
  Serious: Yes (Other)
  Sender: FDA-Public Use
  Company Number: US-PFIZER INC-2008072148

PATIENT
  Age: 53 Year
  Sex: Male

DRUGS (7)
  1. VORICONAZOLE [Suspect]
     Indication: PROPHYLAXIS
  2. TACROLIMUS [Concomitant]
     Indication: IMMUNOSUPPRESSION
  3. MYCOPHENOLATE MOFETIL [Concomitant]
     Indication: IMMUNOSUPPRESSION
  4. METHYLPREDNISOLONE [Concomitant]
     Dosage: DAILY DOSE:20MG
  5. ACYCLOVIR [Concomitant]
     Indication: PROPHYLAXIS
  6. PHENOXYMETHYL PENICILLIN [Concomitant]
     Indication: PROPHYLAXIS
  7. SULFAMETHOXAZOLE AND TRIMETHOPRIM [Concomitant]
     Indication: PROPHYLAXIS
     Dosage: TEXT:1 DF-FREQ:TWICE DAILY ON 2 DAYS A WEEK
     Route: 048

REACTIONS (1)
  - ACANTHAMOEBA INFECTION [None]
